FAERS Safety Report 6689332-4 (Version None)
Quarter: 2010Q2

REPORT INFORMATION
  Report Type: 
  Country: None (occurrence: None)
  Receive Date: 20100416
  Receipt Date: 20100409
  Transmission Date: 20101027
  Serious: Yes (Hospitalization)
  Sender: FDA-Public Use
  Company Number: DSA_42585_2010

PATIENT
  Age: 71 Year
  Sex: Female

DRUGS (2)
  1. OXYCARDIL (OXYCARDIL -DILTIAZEM) 200 MG (NOT SPECIFIED) [Suspect]
     Indication: HYPERTENSION
     Dosage: 200 MG FREQUENCY UNKNOWN ORAL
     Route: 048
  2. CALCIUM CHANNEL BLOCKERS [Concomitant]

REACTIONS (11)
  - ACANTHOSIS [None]
  - ACUTE GENERALISED EXANTHEMATOUS PUSTULOSIS [None]
  - ALANINE AMINOTRANSFERASE INCREASED [None]
  - ANAEMIA [None]
  - ASPARTATE AMINOTRANSFERASE INCREASED [None]
  - BLISTER [None]
  - CONNECTIVE TISSUE DISORDER [None]
  - GENITAL HERPES [None]
  - HYPERKERATOSIS [None]
  - HYPOKALAEMIA [None]
  - PARAKERATOSIS [None]
